FAERS Safety Report 11205655 (Version 4)
Quarter: 2016Q4

REPORT INFORMATION
  Report Type: Spontaneous
  Country: US (occurrence: US)
  Receive Date: 20150622
  Receipt Date: 20161219
  Transmission Date: 20170206
  Serious: Yes (Other)
  Sender: FDA-Public Use
  Company Number: US-BAYER-2015-328326

PATIENT
  Sex: Male
  Weight: 171.43 kg

DRUGS (4)
  1. LOVENOX [Concomitant]
     Active Substance: ENOXAPARIN SODIUM
  2. AVELOX [Suspect]
     Active Substance: MOXIFLOXACIN HYDROCHLORIDE
     Indication: INFLUENZA
     Dosage: 400 MG, QD
     Dates: start: 200509
  3. AVELOX [Suspect]
     Active Substance: MOXIFLOXACIN HYDROCHLORIDE
     Indication: INFECTION
     Dosage: UNK
     Dates: start: 20050815
  4. COUMADIN [Concomitant]
     Active Substance: WARFARIN SODIUM

REACTIONS (27)
  - Gait disturbance [None]
  - Tibia fracture [None]
  - Deep vein thrombosis [None]
  - Swelling [None]
  - Pain [None]
  - Discomfort [None]
  - Anxiety [None]
  - Otitis externa [None]
  - Neuralgia [None]
  - Polyneuropathy [None]
  - Erythema [None]
  - Injury [None]
  - Activities of daily living impaired [None]
  - Neuropathy peripheral [None]
  - Emotional distress [None]
  - Anhedonia [None]
  - Impaired healing [None]
  - Paraesthesia [None]
  - Hypoaesthesia [None]
  - Dysstasia [None]
  - Neuropathy peripheral [None]
  - Pain in extremity [None]
  - Poor peripheral circulation [None]
  - Increased tendency to bruise [None]
  - Burning sensation [None]
  - Muscular weakness [None]
  - Oedema [None]

NARRATIVE: CASE EVENT DATE: 2005
